FAERS Safety Report 5130524-3 (Version None)
Quarter: 2006Q4

REPORT INFORMATION
  Report Type: 
  Country: None (occurrence: None)
  Receive Date: 20061013
  Receipt Date: 20060929
  Transmission Date: 20070319
  Serious: Yes (Death)
  Sender: FDA-Public Use
  Company Number: US200609007478

PATIENT
  Age: 50 Year
  Sex: Male

DRUGS (1)
  1. XIGRIS [Suspect]
     Indication: PNEUMONIA STAPHYLOCOCCAL
     Dosage: INTRAVENOUS
     Route: 042
     Dates: start: 20060926

REACTIONS (1)
  - DEATH [None]
